FAERS Safety Report 8904644 (Version 1)
Quarter: 2012Q4

REPORT INFORMATION
  Report Type: 
  Country: US (occurrence: US)
  Receive Date: 20121113
  Receipt Date: 20121113
  Transmission Date: 20130627
  Serious: No
  Sender: FDA-Public Use
  Company Number: US-GLAXOSMITHKLINE-A0945306A

PATIENT
  Sex: Female

DRUGS (5)
  1. COREG [Suspect]
     Indication: MYOCARDIAL INFARCTION
     Dosage: 25MG Twice per day
     Route: 048
  2. COREG CR [Suspect]
     Dosage: 80MG Per day
     Route: 048
  3. RAMIPRIL [Concomitant]
  4. METFORMIN [Concomitant]
  5. HCTZ [Concomitant]

REACTIONS (1)
  - Blood pressure increased [Recovering/Resolving]
